FAERS Safety Report 12508826 (Version 1)
Quarter: 2016Q2

REPORT INFORMATION
  Report Type: Spontaneous
  Country: US (occurrence: US)
  Receive Date: 20160629
  Receipt Date: 20160629
  Transmission Date: 20160815
  Serious: No
  Sender: FDA-Public Use
  Company Number: US-ACTELION-A-US2014-108075

PATIENT
  Age: 49 Year
  Sex: Female

DRUGS (3)
  1. VELETRI [Suspect]
     Active Substance: EPOPROSTENOL
     Indication: PULMONARY ARTERIAL HYPERTENSION
     Dosage: 6 NG/KG, PER MIN
     Route: 042
     Dates: start: 20141105
  2. OXYGEN. [Concomitant]
     Active Substance: OXYGEN
  3. REVATIO [Concomitant]
     Active Substance: SILDENAFIL CITRATE

REACTIONS (11)
  - Catheter site erythema [Unknown]
  - Rash [Unknown]
  - Pain in jaw [Unknown]
  - Catheter site pruritus [Unknown]
  - Nausea [Unknown]
  - Vomiting [Unknown]
  - Productive cough [Unknown]
  - Pain [Unknown]
  - Headache [Unknown]
  - Catheter site discharge [Unknown]
  - Ear pain [Unknown]
